FAERS Safety Report 11656369 (Version 1)
Quarter: 2015Q4

REPORT INFORMATION
  Report Type: Spontaneous
  Country: US (occurrence: US)
  Receive Date: 20151023
  Receipt Date: 20151023
  Transmission Date: 20160304
  Serious: Yes (Hospitalization)
  Sender: FDA-Public Use
  Company Number: US-UNICHEM LABORATORIES LIMITED-UCM201510-000851

PATIENT
  Age: 36 Year
  Sex: Male

DRUGS (4)
  1. TENOFOVIR [Concomitant]
     Active Substance: TENOFOVIR
  2. LAMOTRIGINE. [Suspect]
     Active Substance: LAMOTRIGINE
  3. EMTRICITABINE [Concomitant]
     Active Substance: EMTRICITABINE
  4. RALTEGRAVIR. [Concomitant]
     Active Substance: RALTEGRAVIR

REACTIONS (5)
  - Electrocardiogram QRS complex prolonged [Recovered/Resolved]
  - Status epilepticus [Unknown]
  - Suicide attempt [Unknown]
  - Intentional overdose [Unknown]
  - Critical illness myopathy [Unknown]
